FAERS Safety Report 8800332 (Version 2)
Quarter: 2013Q2

REPORT INFORMATION
  Report Type: Spontaneous
  Country: US (occurrence: US)
  Receive Date: 20120921
  Receipt Date: 20130620
  Transmission Date: 20140414
  Serious: Yes (Hospitalization, Other)
  Sender: FDA-Public Use
  Company Number: CHPA2012US020077

PATIENT
  Age: 71 Year
  Sex: Female

DRUGS (2)
  1. CONTROL PLP [Suspect]
     Indication: SMOKING CESSATION THERAPY
     Dosage: 21 MG, QD
     Route: 062
     Dates: start: 20120701, end: 20120726
  2. LASIX [Suspect]
     Dosage: UNK, UNK

REACTIONS (6)
  - Blood potassium decreased [Recovered/Resolved]
  - Procedural pain [Recovered/Resolved]
  - Pneumothorax [Recovered/Resolved]
  - Asthenia [Recovered/Resolved]
  - Dyspnoea [Recovered/Resolved]
  - Weight decreased [Unknown]
